FAERS Safety Report 6687887-7 (Version None)
Quarter: 2010Q2

REPORT INFORMATION
  Report Type: 
  Country: None (occurrence: None)
  Receive Date: 20100420
  Receipt Date: 20100413
  Transmission Date: 20101027
  Serious: Yes (Hospitalization, Other)
  Sender: FDA-Public Use
  Company Number: FR-SANOFI-AVENTIS-200912742FR

PATIENT
  Age: 81 Year
  Sex: Male

DRUGS (4)
  1. CEFOTAXIME SODIUM [Suspect]
     Dosage: DOSE UNIT: 2 G
     Route: 042
     Dates: start: 20090706, end: 20090713
  2. ROVAMYCINE [Suspect]
     Dosage: DOSE UNIT: 1.5 MIU DOSE:1.5 MILLION UNITS
     Route: 042
     Dates: start: 20090706, end: 20090713
  3. CALCIPARINE ^DIFREX^ [Concomitant]
     Indication: DRUG USE FOR UNKNOWN INDICATION
     Route: 058
  4. TAVANIC [Concomitant]

REACTIONS (3)
  - ACUTE MYELOID LEUKAEMIA [None]
  - NEUTROPENIA [None]
  - PANCYTOPENIA [None]
